FAERS Safety Report 9206330 (Version 1)
Quarter: 2013Q2

REPORT INFORMATION
  Report Type: Spontaneous
  Country: KR (occurrence: KR)
  Receive Date: 20130403
  Receipt Date: 20130403
  Transmission Date: 20140414
  Serious: Yes (Hospitalization, Other)
  Sender: FDA-Public Use
  Company Number: PHHY2013KR030347

PATIENT
  Sex: Female

DRUGS (1)
  1. GLIVEC [Suspect]
     Indication: CHRONIC MYELOID LEUKAEMIA
     Dosage: 300 MG, QD
     Route: 048
     Dates: start: 20100625

REACTIONS (6)
  - Anaemia [Unknown]
  - Blood potassium decreased [Unknown]
  - Haemorrhoids [Unknown]
  - Anal haemorrhage [Unknown]
  - Hyperhidrosis [Unknown]
  - Constipation [Unknown]
